FAERS Safety Report 8443492-3 (Version None)
Quarter: 2012Q2

REPORT INFORMATION
  Report Type: 
  Country: None (occurrence: None)
  Receive Date: 20120605
  Receipt Date: 20120525
  Transmission Date: 20120825
  Serious: Yes (Hospitalization)
  Sender: FDA-Public Use
  Company Number: 2012SP028911

PATIENT
  Age: 45 Year
  Sex: Male

DRUGS (6)
  1. VICTRELIS [Suspect]
     Indication: HEPATITIS C
     Dosage: 800 MG;TID
     Dates: start: 20110614
  2. NEUPOGEN [Concomitant]
  3. ZOVIRAX [Concomitant]
  4. VIRAFERONPEG [Suspect]
     Indication: HEPATITIS C
     Dosage: 80 MCG;QW
     Dates: start: 20110517
  5. COPEGUS [Suspect]
     Indication: HEPATITIS C
     Dosage: 800 MG;QD
     Dates: start: 20110517
  6. NEORECORMON [Concomitant]

REACTIONS (11)
  - ERYTHEMA [None]
  - CHOLECYSTITIS ACUTE [None]
  - SCAR [None]
  - HEPATIC NEOPLASM MALIGNANT [None]
  - HEPATIC CIRRHOSIS [None]
  - ABDOMINAL PAIN LOWER [None]
  - TOXIC SKIN ERUPTION [None]
  - MEMORY IMPAIRMENT [None]
  - FATIGUE [None]
  - ABASIA [None]
  - HEPATIC ENCEPHALOPATHY [None]
